FAERS Safety Report 6633279-6 (Version None)
Quarter: 2010Q1

REPORT INFORMATION
  Report Type: 
  Country: None (occurrence: None)
  Receive Date: 20100312
  Receipt Date: 20100302
  Transmission Date: 20100710
  Serious: Yes (Hospitalization, Other)
  Sender: FDA-Public Use
  Company Number: NO-PFIZER INC-2010027077

PATIENT
  Age: 65 Year
  Sex: Female

DRUGS (14)
  1. CELEBRA [Suspect]
     Indication: RHEUMATOID ARTHRITIS
     Dosage: 200 MG, 1X/DAY
     Route: 048
     Dates: start: 20020601, end: 20050425
  2. VIOXX [Suspect]
     Indication: RHEUMATOID ARTHRITIS
     Dosage: UNK
     Dates: start: 20020101, end: 20020101
  3. ARAVA [Concomitant]
     Dosage: UNK
  4. ZESTORETIC [Concomitant]
  5. SOMADRIL [Concomitant]
  6. PARACET [Concomitant]
  7. IMOVANE [Concomitant]
  8. FUROSEMID [Concomitant]
  9. LEVOTHYROXINE SODIUM [Concomitant]
  10. LIOTHYRONINE [Concomitant]
  11. AERIUS [Concomitant]
  12. CALCIGRAN FORTE [Concomitant]
  13. SERETIDE [Concomitant]
  14. VENTOLIN [Concomitant]

REACTIONS (7)
  - ACUTE MYOCARDIAL INFARCTION [None]
  - BLOOD CHOLESTEROL INCREASED [None]
  - CARDIAC FAILURE [None]
  - ISCHAEMIC CARDIOMYOPATHY [None]
  - MITRAL VALVE INCOMPETENCE [None]
  - TACHYCARDIA [None]
  - TYPE 2 DIABETES MELLITUS [None]
